FAERS Safety Report 6014863-X (Version None)
Quarter: 2008Q4

REPORT INFORMATION
  Report Type: 
  Country: None (occurrence: None)
  Receive Date: 20081219
  Receipt Date: 20081215
  Transmission Date: 20090506
  Serious: Yes (Hospitalization)
  Sender: FDA-Public Use
  Company Number: US-ROXANE LABORATORIES, INC.-2008-RO-00435RO

PATIENT
  Age: 6 Year
  Sex: Male

DRUGS (5)
  1. SERTRALINE [Suspect]
  2. DEXTROMETHORPHAN HYDROBROMIDE [Suspect]
  3. FENTANYL-100 [Concomitant]
     Indication: SEDATION
  4. VERSED [Concomitant]
     Indication: SEDATION
  5. IV FLUIDS [Concomitant]

REACTIONS (3)
  - DRUG INTERACTION [None]
  - DRUG LEVEL ABOVE THERAPEUTIC [None]
  - SEROTONIN SYNDROME [None]
